FAERS Safety Report 8947753 (Version 2)
Quarter: 2013Q1

REPORT INFORMATION
  Report Type: Spontaneous
  Country: FR (occurrence: None)
  Receive Date: 20121127
  Receipt Date: 20121205
  Transmission Date: 20140127
  Serious: Yes (Hospitalization)
  Sender: FDA-Public Use
  Company Number: 2012CP000147

PATIENT
  Age: 18 Year
  Sex: Male

DRUGS (6)
  1. PERFALGAN [Suspect]
     Route: 042
     Dates: start: 20121012, end: 20121018
  2. AUGMENTIN (NO PREF. NAME [Suspect]
     Dates: start: 20121012
  3. ROCEPHINE [Suspect]
     Dates: start: 20121013, end: 20121026
  4. OFLOXACIN [Suspect]
     Dates: start: 20121013, end: 20121026
  5. TRAMADOL HCL [Suspect]
     Dates: start: 20121012, end: 20121018
  6. ACUPAN [Suspect]
     Dates: start: 20121012, end: 20121018

REACTIONS (4)
  - Blood alkaline phosphatase increased [None]
  - Hepatocellular injury [None]
  - Cholestasis [None]
  - Hepatocellular injury [None]
